FAERS Safety Report 8890824 (Version 1)
Quarter: 2012Q4

REPORT INFORMATION
  Report Type: 
  Country: US (occurrence: US)
  Receive Date: 20121106
  Receipt Date: 20121106
  Transmission Date: 20130627
  Serious: Yes (Other)
  Sender: FDA-Public Use
  Company Number: CHPA2012US022954

PATIENT
  Age: 65 Year
  Sex: Female

DRUGS (2)
  1. EXCEDRIN EXTRA STRENGTH [Suspect]
     Indication: HEADACHE
     Dosage: 2 DF, five times a day
     Route: 048
     Dates: start: 1960
  2. EXCEDRIN EXTRA STRENGTH [Suspect]
     Dosage: 1-2 DF, PRN
     Route: 048

REACTIONS (6)
  - Drug abuse [Recovered/Resolved]
  - Hepatic enzyme increased [Recovered/Resolved]
  - Migraine [Recovered/Resolved]
  - Sinusitis [Recovered/Resolved]
  - Overdose [Unknown]
  - Underdose [Unknown]
